FAERS Safety Report 21096994 (Version 1)
Quarter: 2022Q3

REPORT INFORMATION
  Report Type: Report from Study
  Country: US (occurrence: US)
  Receive Date: 20220718
  Receipt Date: 20220718
  Transmission Date: 20221026
  Serious: Yes (Other)
  Sender: FDA-Public Use
  Company Number: US-BIOVITRUM-2022US07011

PATIENT
  Sex: Female

DRUGS (1)
  1. KINERET [Suspect]
     Active Substance: ANAKINRA
     Indication: Product used for unknown indication

REACTIONS (12)
  - Diabetes mellitus [Unknown]
  - Arthralgia [Unknown]
  - Discomfort [Unknown]
  - Fatigue [Unknown]
  - Alopecia [Unknown]
  - Blood pressure abnormal [Unknown]
  - Weight increased [Unknown]
  - Discomfort [Unknown]
  - Pain [Recovering/Resolving]
  - Miliaria [Unknown]
  - Eye pruritus [Unknown]
  - Pruritus [Recovered/Resolved]
